FAERS Safety Report 8071689-3 (Version None)
Quarter: 2012Q1

REPORT INFORMATION
  Report Type: 
  Country: None (occurrence: None)
  Receive Date: 20120125
  Receipt Date: 20120119
  Transmission Date: 20120608
  Serious: Yes (Hospitalization)
  Sender: FDA-Public Use
  Company Number: GB-ROCHE-1031786

PATIENT
  Sex: Female
  Weight: 65 kg

DRUGS (2)
  1. METHOTREXATE [Concomitant]
  2. ACTEMRA [Suspect]
     Indication: RHEUMATOID ARTHRITIS
     Dates: start: 20110516

REACTIONS (2)
  - GASTROINTESTINAL HAEMORRHAGE [None]
  - DIVERTICULUM [None]
